FAERS Safety Report 4555307-4 (Version None)
Quarter: 2004Q4

REPORT INFORMATION
  Report Type: 
  Country: None (occurrence: None)
  Receive Date: 20041227
  Receipt Date: 20040922
  Transmission Date: 20050328
  Serious: Yes (Other)
  Sender: FDA-Public Use
  Company Number: PRA090293

PATIENT
  Age: 51 Year
  Sex: Female

DRUGS (3)
  1. ARANESP [Suspect]
     Indication: ANAEMIA OF MALIGNANT DISEASE
     Dosage: 225 MCG, 1 IN 3 WEEKS, SC
     Route: 058
     Dates: start: 20040708
  2. CAPECITABINE [Concomitant]
  3. ZOLEDRONIC ACID [Concomitant]

REACTIONS (1)
  - PHLEBOTHROMBOSIS [None]
